FAERS Safety Report 16630636 (Version 1)
Quarter: 2019Q3

REPORT INFORMATION
  Report Type: Spontaneous
  Country: CN (occurrence: CN)
  Receive Date: 20190725
  Receipt Date: 20190725
  Transmission Date: 20191004
  Serious: Yes (Hospitalization, Other)
  Sender: FDA-Public Use
  Company Number: CN-PFIZER INC-2019313754

PATIENT
  Age: 42 Year
  Sex: Male

DRUGS (2)
  1. CYTARABINE. [Suspect]
     Active Substance: CYTARABINE
     Indication: CHEMOTHERAPY
     Dosage: 0.1 G, 2X/DAY
     Route: 041
     Dates: start: 20190704, end: 20190708
  2. DAUNORUBICIN HCL [Suspect]
     Active Substance: DAUNORUBICIN HYDROCHLORIDE
     Indication: CHEMOTHERAPY
     Dosage: 90 MG, 1X/DAY
     Route: 040
     Dates: start: 20190704, end: 20190706

REACTIONS (4)
  - Pain [Unknown]
  - Pyrexia [Unknown]
  - Bone marrow failure [Recovering/Resolving]
  - Gingival swelling [Unknown]

NARRATIVE: CASE EVENT DATE: 20190717
